FAERS Safety Report 5359443-4 (Version None)
Quarter: 2007Q2

REPORT INFORMATION
  Report Type: 
  Country: None (occurrence: None)
  Receive Date: 20070615
  Receipt Date: 20070605
  Transmission Date: 20071010
  Serious: Yes (Hospitalization)
  Sender: FDA-Public Use
  Company Number: JP-PFIZER INC-2007042514

PATIENT
  Age: 24 Month
  Sex: Female
  Weight: 13 kg

DRUGS (2)
  1. SOLU-MEDROL [Suspect]
     Indication: KAWASAKI'S DISEASE
     Dosage: DAILY DOSE:400MG
     Route: 042
     Dates: start: 20070519, end: 20070520
  2. HEPARIN SODIUM [Concomitant]
     Route: 042

REACTIONS (1)
  - AGGRESSION [None]
